FAERS Safety Report 4756618-X (Version None)
Quarter: 2005Q3

REPORT INFORMATION
  Report Type: 
  Country: None (occurrence: None)
  Receive Date: 20050830
  Receipt Date: 20030113
  Transmission Date: 20060218
  Serious: Yes (Hospitalization, Disabling, Other)
  Sender: FDA-Public Use
  Company Number: US-MERCK-0301USA01087

PATIENT
  Age: 49 Year
  Sex: Male
  Weight: 85 kg

DRUGS (20)
  1. VIOXX [Suspect]
     Indication: BACK PAIN
     Route: 048
     Dates: start: 20001008, end: 20020420
  2. DIOVAN [Concomitant]
     Indication: HYPERTENSION
     Route: 065
     Dates: start: 19991101, end: 20030401
  3. LASIX [Concomitant]
     Indication: CARDIAC DISORDER
     Route: 065
     Dates: start: 20001101
  4. LASIX [Concomitant]
     Indication: HYPERTENSION
     Route: 065
     Dates: start: 20001101
  5. NEXIUM [Concomitant]
     Indication: GASTROOESOPHAGEAL REFLUX DISEASE
     Route: 065
     Dates: start: 19980101
  6. ZAROXOLYN [Concomitant]
     Indication: HYPERTENSION
     Route: 065
     Dates: start: 19991201
  7. TORSEMIDE [Concomitant]
     Indication: HYPERTENSION
     Route: 065
     Dates: start: 19991201
  8. OXYCONTIN [Concomitant]
     Route: 065
     Dates: start: 20001101, end: 20001101
  9. ULTRAM [Concomitant]
     Route: 065
  10. NEURONTIN [Concomitant]
     Route: 065
  11. ZANAFLEX [Concomitant]
     Route: 065
  12. CELEXA [Concomitant]
     Route: 065
     Dates: start: 20000101
  13. POTASSIUM CHLORIDE [Concomitant]
     Route: 065
  14. AMITRIPTYLINE HYDROCHLORIDE [Concomitant]
     Route: 065
  15. AMITRIPTYLINE HYDROCHLORIDE [Concomitant]
     Route: 065
     Dates: start: 20000101
  16. AMBIEN [Concomitant]
     Route: 065
  17. ALEVE [Concomitant]
     Route: 065
  18. LEXAPRO [Concomitant]
     Indication: DEPRESSION
     Route: 065
     Dates: start: 20000101
  19. ALPRAZOLAM [Concomitant]
     Indication: DEPRESSION
     Route: 065
     Dates: start: 20000101
  20. NORTRIPTYLINE [Concomitant]
     Indication: DEPRESSION
     Route: 065
     Dates: start: 20000101

REACTIONS (38)
  - ANGINA PECTORIS [None]
  - ANXIETY [None]
  - BACK DISORDER [None]
  - BLOOD CHOLESTEROL INCREASED [None]
  - BLOOD PRESSURE DECREASED [None]
  - BLOOD TRIGLYCERIDES INCREASED [None]
  - BRONCHITIS [None]
  - CARDIOMEGALY [None]
  - CEREBROVASCULAR ACCIDENT [None]
  - CHEST PAIN [None]
  - CHRONIC FATIGUE SYNDROME [None]
  - CLOSTRIDIUM COLITIS [None]
  - CONVULSION [None]
  - DEPRESSION [None]
  - DIZZINESS [None]
  - EMOTIONAL DISTRESS [None]
  - FIBROSIS [None]
  - FLUID RETENTION [None]
  - GASTROOESOPHAGEAL REFLUX DISEASE [None]
  - HAEMATOCHEZIA [None]
  - HEADACHE [None]
  - HYPERHIDROSIS [None]
  - HYPERLIPIDAEMIA [None]
  - HYPOXIA [None]
  - ILEUS [None]
  - LUMBAR RADICULOPATHY [None]
  - MYOCARDIAL INFARCTION [None]
  - NEPHROLITHIASIS [None]
  - OEDEMA [None]
  - PNEUMONIA [None]
  - PNEUMONIA ASPIRATION [None]
  - PNEUMONIA PNEUMOCOCCAL [None]
  - RASH [None]
  - RENAL FAILURE ACUTE [None]
  - RHABDOMYOLYSIS [None]
  - SINUSITIS [None]
  - SPINAL COMPRESSION FRACTURE [None]
  - STAPHYLOCOCCAL INFECTION [None]
